FAERS Safety Report 8249248-9 (Version None)
Quarter: 2012Q2

REPORT INFORMATION
  Report Type: 
  Country: None (occurrence: None)
  Receive Date: 20120402
  Receipt Date: 20120323
  Transmission Date: 20120825
  Serious: Yes (Hospitalization)
  Sender: FDA-Public Use
  Company Number: US-BAYER-2011-067615

PATIENT
  Age: 21 Year
  Sex: Female

DRUGS (2)
  1. SPIRONOLACTONE [Concomitant]
     Dosage: 50 MG, QD
  2. YAZ [Suspect]
     Indication: HIRSUTISM
     Dosage: UNK
     Dates: start: 20090701

REACTIONS (7)
  - COMPLICATED MIGRAINE [None]
  - ANXIETY [None]
  - CEREBROVASCULAR ACCIDENT [None]
  - TRANSIENT ISCHAEMIC ATTACK [None]
  - INJURY [None]
  - PAIN [None]
  - ANHEDONIA [None]
